FAERS Safety Report 4346443-6 (Version None)
Quarter: 2004Q1

REPORT INFORMATION
  Report Type: 
  Country: None (occurrence: None)
  Receive Date: 20040325
  Receipt Date: 20040108
  Transmission Date: 20041129
  Serious: No
  Sender: FDA-Public Use
  Company Number: USA040156163

PATIENT
  Age: 55 Year
  Sex: Female

DRUGS (1)
  1. FORTEO [Suspect]

REACTIONS (4)
  - BONE PAIN [None]
  - CONTUSION [None]
  - FALL [None]
  - SKELETAL INJURY [None]
